FAERS Safety Report 24816639 (Version 1)
Quarter: 2025Q1

REPORT INFORMATION
  Report Type: Spontaneous
  Country: CN (occurrence: CN)
  Receive Date: 20250107
  Receipt Date: 20250107
  Transmission Date: 20250409
  Serious: Yes (Other)
  Sender: SANDOZ
  Company Number: CN-SANDOZ-SDZ2025CN000471

PATIENT

DRUGS (1)
  1. LOSARTAN [Suspect]
     Active Substance: LOSARTAN
     Indication: Product used for unknown indication
     Dosage: 50 MG, QD,FOR 12 CONSECUTIVE WEEKS
     Route: 065

REACTIONS (5)
  - Ketoacidosis [Unknown]
  - Lethargy [Unknown]
  - Hypotension [Unknown]
  - Dizziness [Unknown]
  - Somnolence [Unknown]
